FAERS Safety Report 8811819 (Version 1)
Quarter: 2012Q4

REPORT INFORMATION
  Report Type: 
  Country: BR (occurrence: BR)
  Receive Date: 20120927
  Receipt Date: 20120927
  Transmission Date: 20130627
  Serious: Yes (Death)
  Sender: FDA-Public Use
  Company Number: BR-GLAXOSMITHKLINE-A0995197A

PATIENT
  Sex: Male

DRUGS (1)
  1. ARIXTRA [Suspect]
     Indication: PRODUCT USED FOR UNKNOWN INDICATION

REACTIONS (8)
  - Death [Fatal]
  - Haemorrhage [Unknown]
  - Wound haemorrhage [Unknown]
  - Wound evisceration [Unknown]
  - Cough [Unknown]
  - Thrombosis [Unknown]
  - Contusion [Unknown]
  - Haemoglobin decreased [Unknown]
